FAERS Safety Report 6892613-2 (Version None)
Quarter: 2010Q3

REPORT INFORMATION
  Report Type: 
  Country: None (occurrence: None)
  Receive Date: 20100731
  Receipt Date: 20080806
  Transmission Date: 20110219
  Serious: Yes (Other)
  Sender: FDA-Public Use
  Company Number: US-PFIZER INC-2005132308

PATIENT
  Sex: Male

DRUGS (5)
  1. NEURONTIN [Suspect]
     Indication: NEURALGIA
     Route: 048
  2. NEURONTIN [Suspect]
     Indication: MUSCULAR WEAKNESS
  3. CLONIDINE [Concomitant]
  4. VICODIN [Concomitant]
  5. XANAX [Concomitant]

REACTIONS (2)
  - DRUG INEFFECTIVE [None]
  - SUICIDE ATTEMPT [None]
